FAERS Safety Report 7986039-8 (Version None)
Quarter: 2011Q4

REPORT INFORMATION
  Report Type: 
  Country: None (occurrence: None)
  Receive Date: 20111216
  Receipt Date: 20110209
  Transmission Date: 20120403
  Serious: No
  Sender: FDA-Public Use
  Company Number: US-BRISTOL-MYERS SQUIBB COMPANY-15474778

PATIENT
  Age: 55 Year
  Sex: Female

DRUGS (2)
  1. ABILIFY [Suspect]
     Indication: BIPOLAR DISORDER
     Dosage: THERAPY STOPPED ON 03-JAN-2011 AND RESTARTED ON 20-JAN-2011.
     Route: 048
     Dates: start: 20101207
  2. WELLBUTRIN [Concomitant]

REACTIONS (1)
  - RAYNAUD'S PHENOMENON [None]
